FAERS Safety Report 7556745-8 (Version None)
Quarter: 2011Q2

REPORT INFORMATION
  Report Type: 
  Country: None (occurrence: None)
  Receive Date: 20110620
  Receipt Date: 20110607
  Transmission Date: 20111010
  Serious: Yes (Hospitalization, Disabling)
  Sender: FDA-Public Use
  Company Number: US-ELI_LILLY_AND_COMPANY-US201106002532

PATIENT
  Age: 81 Year
  Sex: Female

DRUGS (14)
  1. MOBIC [Concomitant]
  2. LIPITOR [Concomitant]
  3. ABILIFY [Concomitant]
  4. LORA TAB [Concomitant]
  5. FENTANYL-100 [Concomitant]
  6. PROTONIX [Concomitant]
  7. MULTIVITAMIN [Concomitant]
  8. LYRICA [Concomitant]
  9. CYMBALTA [Suspect]
     Dosage: 90 MG, QD
  10. TOPROL-XL [Concomitant]
  11. ISOSORB                            /00586302/ [Concomitant]
  12. FUROSEMIDE [Concomitant]
  13. WARFARIN SODIUM [Concomitant]
  14. DURAGESIC-100 [Concomitant]
     Dosage: 100 MG, UNK

REACTIONS (3)
  - DYSPNOEA [None]
  - ABASIA [None]
  - BREAST CANCER [None]
